FAERS Safety Report 4529539-5 (Version None)
Quarter: 2004Q4

REPORT INFORMATION
  Report Type: 
  Country: None (occurrence: None)
  Receive Date: 20041216
  Receipt Date: 20030915
  Transmission Date: 20050328
  Serious: Yes (Hospitalization)
  Sender: FDA-Public Use
  Company Number: FR-MERCK-0309FRA00056

PATIENT
  Age: 47 Year
  Sex: Male

DRUGS (3)
  1. ZOCOR [Suspect]
     Indication: HYPERCHOLESTEROLAEMIA
     Route: 048
     Dates: start: 19990101, end: 20030912
  2. ZOCOR [Suspect]
     Route: 048
     Dates: start: 20030101, end: 20030101
  3. TIMOPTIC [Concomitant]
     Indication: GLAUCOMA
     Route: 047
     Dates: start: 19880101

REACTIONS (2)
  - LIPASE INCREASED [None]
  - PANCREATIC CYST [None]
